FAERS Safety Report 5828653-1 (Version None)
Quarter: 2008Q3

REPORT INFORMATION
  Report Type: 
  Country: None (occurrence: None)
  Receive Date: 20080731
  Receipt Date: 20080724
  Transmission Date: 20090109
  Serious: Yes (Other)
  Sender: FDA-Public Use
  Company Number: B0530243A

PATIENT
  Sex: Female

DRUGS (4)
  1. ZANTAC [Suspect]
     Indication: GASTRITIS
     Dosage: 75MG TWICE PER DAY
     Route: 048
     Dates: start: 20050101
  2. CONCURRENT MEDICATIONS [Concomitant]
  3. ASPIRIN [Concomitant]
     Route: 048
  4. PRAVASTATIN [Concomitant]
     Route: 048

REACTIONS (3)
  - BURNING SENSATION [None]
  - RASH [None]
  - SKIN ATROPHY [None]
